FAERS Safety Report 6418635-3 (Version None)
Quarter: 2009Q4

REPORT INFORMATION
  Report Type: 
  Country: None (occurrence: None)
  Receive Date: 20091021
  Receipt Date: 20090730
  Transmission Date: 20100525
  Serious: No
  Sender: FDA-Public Use
  Company Number: ALL1-2009-02120

PATIENT
  Age: 45 Year
  Sex: Male
  Weight: 80.7 kg

DRUGS (2)
  1. VYVANSE [Suspect]
     Indication: ATTENTION DEFICIT/HYPERACTIVITY DISORDER
     Dosage: 50 MG, 1X/DAY:QD, ORAL
     Route: 048
     Dates: start: 20080101
  2. COPAXONE [Concomitant]

REACTIONS (3)
  - DRY MOUTH [None]
  - NODULE [None]
  - TONGUE DISORDER [None]
